FAERS Safety Report 23020326 (Version 1)
Quarter: 2023Q4

REPORT INFORMATION
  Report Type: Spontaneous
  Country: US (occurrence: None)
  Receive Date: 20231002
  Receipt Date: 20231002
  Transmission Date: 20240110
  Serious: Yes (Disabling)
  Sender: FDA-Public Use
  Company Number: None

PATIENT
  Age: 78 Year
  Sex: Male
  Weight: 112.5 kg

DRUGS (3)
  1. ROMIDEPSIN [Suspect]
     Active Substance: ROMIDEPSIN
  2. VITAMINS [Concomitant]
     Active Substance: VITAMINS
  3. VITAMIN D3 [Concomitant]
     Active Substance: CHOLECALCIFEROL

REACTIONS (3)
  - Sleep disorder [None]
  - Urinary incontinence [None]
  - Gastrointestinal disorder [None]

NARRATIVE: CASE EVENT DATE: 20230927
